FAERS Safety Report 22071826 (Version 1)
Quarter: 2023Q1

REPORT INFORMATION
  Report Type: Spontaneous
  Country: US (occurrence: US)
  Receive Date: 20230307
  Receipt Date: 20230307
  Transmission Date: 20230418
  Serious: No
  Sender: FDA-Public Use
  Company Number: US-BRISTOL-MYERS SQUIBB COMPANY-2023-033518

PATIENT
  Age: 77 Year
  Sex: Male

DRUGS (1)
  1. CAMZYOS [Suspect]
     Active Substance: MAVACAMTEN
     Indication: Product used for unknown indication
     Dosage: DOSE : 5 MG;     FREQ : UNAVAILABLE (NOT PROVIDED)
     Route: 048
     Dates: start: 202301

REACTIONS (1)
  - Dizziness [Recovered/Resolved]
